FAERS Safety Report 9465754 (Version 2)
Quarter: 2013Q3

REPORT INFORMATION
  Report Type: Spontaneous
  Country: US (occurrence: US)
  Receive Date: 20130820
  Receipt Date: 20130820
  Transmission Date: 20140515
  Serious: No
  Sender: FDA-Public Use
  Company Number: US-ASTELLAS-2013US005112

PATIENT
  Age: 42 Year
  Sex: Male

DRUGS (3)
  1. AMBISOME [Suspect]
     Indication: ERYTHEMA MULTIFORME
     Dosage: 50 MG, UID/QD
     Route: 042
     Dates: start: 20130406, end: 20130409
  2. AMBISOME [Suspect]
     Indication: STOMATITIS
  3. AMBISOME [Suspect]
     Indication: MUCOSAL INFLAMMATION

REACTIONS (1)
  - Off label use [Recovered/Resolved]
